FAERS Safety Report 4381754-X (Version None)
Quarter: 2004Q2

REPORT INFORMATION
  Report Type: 
  Country: None (occurrence: None)
  Receive Date: 20040615
  Receipt Date: 20040604
  Transmission Date: 20050107
  Serious: Yes (Other)
  Sender: FDA-Public Use
  Company Number: GB-JNJFOC-20040601219

PATIENT
  Age: 72 Year
  Sex: Female
  Weight: 84 kg

DRUGS (10)
  1. REMICADE [Suspect]
     Indication: RHEUMATOID ARTHRITIS
     Dosage: 300 MG, 1 IN 8 WEEK, INTRAVENOUS
     Route: 042
     Dates: start: 20020214, end: 20031217
  2. METHOTREXATE [Suspect]
     Indication: RHEUMATOID ARTHRITIS
     Dosage: 25 MG, 1 IN 1 WEEK, ORAL
     Route: 048
     Dates: start: 20030201, end: 20031201
  3. LEFLUNOMIDE [Concomitant]
  4. PREDNISOLONE [Concomitant]
  5. NABUMETONE [Concomitant]
  6. PIOGLITAZONE HCL [Concomitant]
  7. GLICLAZIDE (GLICLAZIDE) [Concomitant]
  8. DIHYDROCODEINE (DIHYDROCODEINE) [Concomitant]
  9. TEMAZEPAM [Concomitant]
  10. PARACETAMOL (PARACETAMOL) [Concomitant]

REACTIONS (2)
  - DRUG INTERACTION [None]
  - WHITE BLOOD CELL COUNT DECREASED [None]
